FAERS Safety Report 7508702-5 (Version None)
Quarter: 2011Q2

REPORT INFORMATION
  Report Type: 
  Country: None (occurrence: None)
  Receive Date: 20110527
  Receipt Date: 20100804
  Transmission Date: 20111010
  Serious: Yes (Other)
  Sender: FDA-Public Use
  Company Number: A0874027A

PATIENT
  Age: 43 Year
  Sex: Male

DRUGS (5)
  1. VENTOLIN [Suspect]
     Indication: ASTHMA
     Dosage: 2PUFF TWICE PER DAY
     Route: 055
     Dates: start: 20070101
  2. ASMANEX TWISTHALER [Concomitant]
  3. CORTICOSTEROID INJECTION [Concomitant]
  4. ASACOL [Concomitant]
  5. NASACORT [Concomitant]

REACTIONS (8)
  - ASTHMA [None]
  - PRODUCT QUALITY ISSUE [None]
  - INSOMNIA [None]
  - DRUG INEFFECTIVE [None]
  - PRODUCT TASTE ABNORMAL [None]
  - CHEST DISCOMFORT [None]
  - DYSPNOEA [None]
  - WHEEZING [None]
